FAERS Safety Report 6245601-3 (Version None)
Quarter: 2009Q2

REPORT INFORMATION
  Report Type: 
  Country: None (occurrence: None)
  Receive Date: 20090619
  Receipt Date: 20090518
  Transmission Date: 20091009
  Serious: No
  Sender: FDA-Public Use
  Company Number: ALL1-2009-01403

PATIENT
  Age: 16 Year
  Sex: Male
  Weight: 59 kg

DRUGS (1)
  1. VYVANSE [Suspect]
     Indication: DRUG USE FOR UNKNOWN INDICATION
     Dosage: 30 MG, 1X/DAY:QD, ORAL ; 20 MG, 1X/DAY:QD, ORAL
     Route: 048

REACTIONS (2)
  - OFF LABEL USE [None]
  - UNEVALUABLE EVENT [None]
